FAERS Safety Report 8707179 (Version 2)
Quarter: 2013Q2

REPORT INFORMATION
  Report Type: Spontaneous
  Country: HR (occurrence: HR)
  Receive Date: 20120803
  Receipt Date: 20130410
  Transmission Date: 20140414
  Serious: Yes (Other)
  Sender: FDA-Public Use
  Company Number: PHHY2012HR066823

PATIENT
  Age: 14 Year
  Sex: Female

DRUGS (2)
  1. RISPERIDONE [Suspect]
     Dosage: 1 MG, QD
     Route: 048
  2. ANXIOLYTICS [Concomitant]

REACTIONS (1)
  - Oculogyric crisis [Recovered/Resolved]
